FAERS Safety Report 7366283-3 (Version None)
Quarter: 2011Q1

REPORT INFORMATION
  Report Type: 
  Country: None (occurrence: None)
  Receive Date: 20110322
  Receipt Date: 20110316
  Transmission Date: 20110831
  Serious: Yes (Hospitalization, Other)
  Sender: FDA-Public Use
  Company Number: US-CEPHALON-2011001250

PATIENT
  Sex: Female

DRUGS (4)
  1. FENTORA [Suspect]
     Indication: BONE PAIN
     Route: 002
     Dates: start: 20080401
  2. OXYCONTIN [Concomitant]
  3. OXYCODONE [Concomitant]
  4. FENTORA [Suspect]
     Indication: CANCER PAIN

REACTIONS (7)
  - BREAST RECONSTRUCTION [None]
  - BREAST CANCER [None]
  - ANKLE FRACTURE [None]
  - SPINAL CORD OPERATION [None]
  - CLOSTRIDIAL INFECTION [None]
  - MIGRAINE [None]
  - MASTECTOMY [None]
